FAERS Safety Report 15681468 (Version 1)
Quarter: 2018Q4

REPORT INFORMATION
  Report Type: Spontaneous
  Country: CA (occurrence: CA)
  Receive Date: 20181203
  Receipt Date: 20181203
  Transmission Date: 20190205
  Serious: Yes (Other)
  Sender: FDA-Public Use
  Company Number: CA-PFIZER INC-2018303484

PATIENT
  Age: 43 Year
  Sex: Male

DRUGS (9)
  1. SOMAVERT [Suspect]
     Active Substance: PEGVISOMANT
     Dosage: 20 MG, 1X/DAY
     Route: 058
     Dates: start: 2018, end: 20181122
  2. VALACYCLOVIR [Concomitant]
     Active Substance: VALACYCLOVIR HYDROCHLORIDE
     Indication: SKIN LESION
     Dosage: 250 MG, (2XDAY) AS NEEDED
     Route: 048
  3. COVERSYL PLUS /01421201/ [Concomitant]
     Active Substance: INDAPAMIDE\PERINDOPRIL ERBUMINE
     Dosage: 4MG/1.25MG, DAILY
     Route: 048
  4. SOMAVERT [Suspect]
     Active Substance: PEGVISOMANT
     Indication: ACROMEGALY
     Dosage: 10 MG, 1X/DAY
     Route: 058
     Dates: start: 20180723, end: 2018
  5. DOSTINEX [Concomitant]
     Active Substance: CABERGOLINE
     Indication: ACROMEGALY
     Dosage: 0.25 MG, WEEKLY FOR 2 DOSES
     Route: 048
     Dates: start: 20170816, end: 201708
  6. LOPROX [Concomitant]
     Active Substance: CICLOPIROX\CICLOPIROX OLAMINE
     Dosage: APPLICATION TO GROIN , DAILY AS NEEDED
     Route: 061
  7. DOSTINEX [Concomitant]
     Active Substance: CABERGOLINE
     Dosage: 0.5 MG, WEEKLY
     Route: 048
     Dates: start: 201708
  8. ANDROGEL [Concomitant]
     Active Substance: TESTOSTERONE
     Dosage: 5 G, DAILY
  9. MOMETASONE [Concomitant]
     Active Substance: MOMETASONE
     Dosage: (2 SPRAYS) 50 UG IN EACH NOSTRIL, (DAILY) AS NEEDED
     Route: 045

REACTIONS (7)
  - Insulin-like growth factor increased [Unknown]
  - Fatigue [Not Recovered/Not Resolved]
  - Neoplasm [Unknown]
  - Mental disability [Unknown]
  - Product dose omission [Unknown]
  - Condition aggravated [Unknown]
  - Drug effect incomplete [Unknown]
